FAERS Safety Report 21844259 (Version 2)
Quarter: 2023Q1

REPORT INFORMATION
  Report Type: Report from Study
  Country: PT (occurrence: PT)
  Receive Date: 20230110
  Receipt Date: 20230206
  Transmission Date: 20230418
  Serious: Yes (Hospitalization)
  Sender: FDA-Public Use
  Company Number: PT-ABBVIE-19P-130-2961039-00

PATIENT
  Age: 62 Year
  Sex: Female

DRUGS (9)
  1. UPADACITINIB [Suspect]
     Active Substance: UPADACITINIB
     Indication: Rheumatoid arthritis
     Route: 048
     Dates: start: 20180712, end: 20190914
  2. LEPICORTINOLE [Concomitant]
     Indication: Rheumatoid arthritis
     Route: 048
     Dates: start: 20171121
  3. ACETAMINOPHEN\THIOCOLCHICOSIDE [Concomitant]
     Active Substance: ACETAMINOPHEN\THIOCOLCHICOSIDE
     Indication: Rheumatoid arthritis
     Dosage: 5200 + 2 MG
     Route: 048
     Dates: start: 20171121
  4. FOLIC ACID [Concomitant]
     Active Substance: FOLIC ACID
     Indication: Vitamin supplementation
     Route: 048
     Dates: start: 20070305
  5. INDAPAMIDE [Concomitant]
     Active Substance: INDAPAMIDE
     Indication: Hypertension
     Route: 048
     Dates: start: 2007
  6. OMEPRAZOLE [Concomitant]
     Active Substance: OMEPRAZOLE
     Indication: Prophylaxis
     Route: 048
     Dates: start: 2003
  7. CALCIUM CARBONATE [Concomitant]
     Active Substance: CALCIUM CARBONATE
     Indication: Osteoporosis prophylaxis
     Route: 048
     Dates: start: 2003
  8. WARFARIN SODIUM [Concomitant]
     Active Substance: WARFARIN SODIUM
     Indication: Deep vein thrombosis
     Route: 048
     Dates: start: 2019, end: 20190324
  9. WARFARIN SODIUM [Concomitant]
     Active Substance: WARFARIN SODIUM
     Indication: Deep vein thrombosis
     Route: 048
     Dates: start: 20190328

REACTIONS (1)
  - Ophthalmic herpes zoster [Recovered/Resolved]

NARRATIVE: CASE EVENT DATE: 20190915
